FAERS Safety Report 16284677 (Version 1)
Quarter: 2019Q2

REPORT INFORMATION
  Report Type: Spontaneous
  Country: US (occurrence: US)
  Receive Date: 20190508
  Receipt Date: 20190508
  Transmission Date: 20190711
  Serious: Yes (Other)
  Sender: FDA-Public Use
  Company Number: US-SA-2019SA121933

PATIENT
  Age: 73 Year
  Sex: Female

DRUGS (4)
  1. TOUJEO [Suspect]
     Active Substance: INSULIN GLARGINE
     Dosage: 80 U, QD
     Route: 065
  2. PAZEO [Concomitant]
     Active Substance: OLOPATADINE HYDROCHLORIDE
     Dosage: UNK
     Route: 065
  3. TOUJEO [Suspect]
     Active Substance: INSULIN GLARGINE
     Indication: TYPE 2 DIABETES MELLITUS
     Dosage: 40 U, QD
     Route: 065
  4. TIMOLOL. [Concomitant]
     Active Substance: TIMOLOL
     Dosage: UNK
     Route: 065

REACTIONS (6)
  - Type 2 diabetes mellitus [Unknown]
  - Stress [Unknown]
  - Glaucoma [Unknown]
  - Visual impairment [Unknown]
  - Blood glucose increased [Unknown]
  - Cataract [Unknown]
